FAERS Safety Report 9244535 (Version 2)
Quarter: 2013Q2

REPORT INFORMATION
  Report Type: Report from Study
  Country: IT (occurrence: IT)
  Receive Date: 20130422
  Receipt Date: 20130422
  Transmission Date: 20140414
  Serious: Yes (Death)
  Sender: FDA-Public Use
  Company Number: IT-CELGENEUS-083-MELPH-13041894

PATIENT
  Age: 71 Year
  Sex: Male
  Weight: 78 kg

DRUGS (8)
  1. REVLIMID [Suspect]
     Indication: PLASMA CELL MYELOMA
     Dosage: 25 MILLIGRAM
     Route: 048
     Dates: start: 20091124, end: 20091214
  2. REVLIMID [Suspect]
     Dosage: 25 MILLIGRAM
     Route: 048
     Dates: start: 20100710, end: 20100730
  3. DEXAMETHASONE [Suspect]
     Indication: PLASMA CELL MYELOMA
     Route: 048
     Dates: start: 20091124, end: 20091127
  4. DEXAMETHASONE [Suspect]
     Route: 048
     Dates: start: 20100710, end: 20100809
  5. ALKERAN [Concomitant]
     Indication: PLASMA CELL MYELOMA
     Dosage: 8 MILLIGRAM
     Route: 048
     Dates: start: 20130114, end: 20130118
  6. ALKERAN [Concomitant]
     Route: 048
  7. DELTACORTENE [Concomitant]
     Indication: PLASMA CELL MYELOMA
     Dosage: 25 MILLIGRAM
     Route: 048
     Dates: start: 20130114, end: 20130118
  8. DELTACORTENE [Concomitant]
     Route: 065

REACTIONS (1)
  - Plasma cell myeloma [Fatal]
